FAERS Safety Report 7864933-6 (Version None)
Quarter: 2011Q4

REPORT INFORMATION
  Report Type: 
  Country: None (occurrence: None)
  Receive Date: 20111028
  Receipt Date: 20100921
  Transmission Date: 20120403
  Serious: No
  Sender: FDA-Public Use
  Company Number: US-GLAXOSMITHKLINE-A0882360A

PATIENT
  Age: 71 Year
  Sex: Male

DRUGS (8)
  1. ALBUTEROL [Concomitant]
     Dosage: 2PUFF FOUR TIMES PER DAY
     Route: 055
  2. OXYGEN [Concomitant]
  3. VENTOLIN [Concomitant]
  4. GLIPIZIDE [Concomitant]
  5. LISINOPRIL [Concomitant]
  6. METFORMIN HCL [Concomitant]
  7. LOVASTATIN [Concomitant]
  8. ADVAIR DISKUS 100/50 [Suspect]
     Indication: EMPHYSEMA
     Dosage: 1PUFF TWICE PER DAY
     Route: 055
     Dates: start: 20100501

REACTIONS (3)
  - DYSPNOEA [None]
  - DRUG INEFFECTIVE [None]
  - DYSPNOEA EXERTIONAL [None]
